FAERS Safety Report 13380289 (Version 7)
Quarter: 2018Q2

REPORT INFORMATION
  Report Type: Report from Study
  Country: JP (occurrence: JP)
  Receive Date: 20170329
  Receipt Date: 20180411
  Transmission Date: 20180711
  Serious: Yes (Death, Life-Threatening, Hospitalization, Disabling, Other)
  Sender: FDA-Public Use
  Company Number: JP-ALEXION PHARMACEUTICALS INC.-A201702633

PATIENT
  Age: 10 Month
  Sex: Male

DRUGS (27)
  1. MEROPEN                            /01250501/ [Concomitant]
     Active Substance: MEROPENEM
     Indication: STAPHYLOCOCCAL SEPSIS
     Dosage: 400 MG, TID
     Route: 042
     Dates: start: 20170216, end: 20170301
  2. VANCOMYCIN                         /00314402/ [Concomitant]
     Active Substance: VANCOMYCIN
     Dosage: 150 MG, QD
     Route: 041
     Dates: start: 20170327, end: 20170405
  3. PREDNISOLONE. [Concomitant]
     Active Substance: PREDNISOLONE
     Indication: PRODUCT USED FOR UNKNOWN INDICATION
     Dosage: 20 MG, QD
     Route: 042
     Dates: start: 20170123
  4. ZYVOX [Concomitant]
     Active Substance: LINEZOLID
     Indication: STAPHYLOCOCCAL SEPSIS
     Dosage: 100 MG, BID
     Route: 042
     Dates: start: 20170220, end: 20170302
  5. MORPHINE HYDROCHLORIDE [Concomitant]
     Active Substance: MORPHINE HYDROCHLORIDE
     Indication: PRODUCT USED FOR UNKNOWN INDICATION
     Dosage: 10 MG, QD
     Route: 041
     Dates: start: 20170226, end: 20170319
  6. SOLIRIS [Suspect]
     Active Substance: ECULIZUMAB
     Dosage: 300 MG, UNK
     Route: 042
     Dates: start: 20170303, end: 20170707
  7. VANCOMYCIN                         /00314402/ [Concomitant]
     Active Substance: VANCOMYCIN
     Indication: STAPHYLOCOCCAL SEPSIS
     Dosage: 100 MG, BID
     Route: 042
     Dates: start: 20170216, end: 20170219
  8. VANCOMYCIN                         /00314402/ [Concomitant]
     Active Substance: VANCOMYCIN
     Dosage: 100-200 MG, DAILY
     Route: 041
     Dates: start: 20170418, end: 20170526
  9. RECOMODULIN [Concomitant]
     Active Substance: THROMBOMODULIN ALFA
     Indication: THROMBOTIC MICROANGIOPATHY
     Dosage: 4480 IU, QD
     Route: 042
     Dates: start: 20170201, end: 20170205
  10. VANCOMYCIN                         /00314402/ [Concomitant]
     Active Substance: VANCOMYCIN
     Dosage: 100 MG, QD
     Route: 041
     Dates: start: 20170220, end: 20170220
  11. VANCOMYCIN                         /00314402/ [Concomitant]
     Active Substance: VANCOMYCIN
     Dosage: 90 MG, QD
     Route: 041
     Dates: start: 20170602, end: 20170715
  12. SOLU-MEDROL [Concomitant]
     Active Substance: METHYLPREDNISOLONE SODIUM SUCCINATE
     Indication: NEPHROTIC SYNDROME
     Dosage: 150 MG, QD
     Route: 041
     Dates: start: 20170307, end: 20170308
  13. CEFAMEZIN                          /00288502/ [Concomitant]
     Active Substance: CEFAZOLIN
     Indication: STAPHYLOCOCCAL SEPSIS
     Dosage: 150 MG, BID
     Route: 042
     Dates: start: 20170215, end: 20170215
  14. PREDONINE [Concomitant]
     Active Substance: PREDNISOLONE
     Indication: NEPHROTIC SYNDROME
     Dosage: UNK, QD
     Route: 041
     Dates: start: 20170220, end: 20170405
  15. MEROPENEM. [Concomitant]
     Active Substance: MEROPENEM
     Dosage: 400 MG, BID
     Route: 041
     Dates: start: 20170417, end: 20170423
  16. NESP [Concomitant]
     Active Substance: DARBEPOETIN ALFA
     Indication: ANAEMIA
     Dosage: UNK, QW
     Route: 041
     Dates: start: 20170427
  17. TEICOPLANIN [Concomitant]
     Active Substance: TEICOPLANIN
     Indication: STAPHYLOCOCCAL SEPSIS
     Dosage: 140 MG, QD
     Route: 041
     Dates: start: 20170719, end: 20170720
  18. SOLIRIS [Suspect]
     Active Substance: ECULIZUMAB
     Indication: HAEMOLYTIC URAEMIC SYNDROME
     Dosage: 600 MG, QW
     Route: 042
     Dates: start: 20170224, end: 20170224
  19. CICLOSPORIN [Concomitant]
     Active Substance: CYCLOSPORINE
     Indication: NEPHROTIC SYNDROME
     Dosage: UNK
     Route: 065
  20. CEFAZOLIN [Concomitant]
     Active Substance: CEFAZOLIN
     Indication: INFECTION
     Dosage: 160 MG, BID
     Route: 041
     Dates: start: 20170407, end: 20170408
  21. MEROPENEM. [Concomitant]
     Active Substance: MEROPENEM
     Indication: STAPHYLOCOCCAL SEPSIS
     Dosage: 400 MG, TID
     Route: 041
     Dates: start: 20170220, end: 20170301
  22. MEROPENEM. [Concomitant]
     Active Substance: MEROPENEM
     Dosage: 275 MG, QD
     Route: 041
     Dates: start: 20170602, end: 20170720
  23. EPOETIN ALFA [Concomitant]
     Active Substance: ERYTHROPOIETIN
     Indication: ANAEMIA
     Dosage: UNK
     Route: 042
     Dates: start: 20170220, end: 20170422
  24. FUNGUARD [Concomitant]
     Active Substance: MICAFUNGIN SODIUM
     Indication: STAPHYLOCOCCAL SEPSIS
     Dosage: 50 MG, QD
     Route: 041
     Dates: start: 20170220, end: 20170326
  25. CEFTRIAXONE. [Concomitant]
     Active Substance: CEFTRIAXONE
     Indication: INFECTION
     Dosage: 600 MG, BID
     Route: 041
     Dates: start: 20170301, end: 20170326
  26. CEFTAZIDIME. [Concomitant]
     Active Substance: CEFTAZIDIME
     Indication: STAPHYLOCOCCAL SEPSIS
     Dosage: 300 MG, QD
     Route: 041
     Dates: start: 20170630, end: 20170708
  27. MAXIPIME [Concomitant]
     Active Substance: CEFEPIME HYDROCHLORIDE
     Indication: STAPHYLOCOCCAL SEPSIS
     Dosage: 300 UNK, UNK
     Route: 041
     Dates: start: 20170708, end: 20170716

REACTIONS (12)
  - Condition aggravated [Fatal]
  - Peritoneal candidiasis [Unknown]
  - Staphylococcal infection [Unknown]
  - Haemorrhagic diathesis [Recovered/Resolved with Sequelae]
  - Aortic thrombosis [Fatal]
  - Pneumonia klebsiella [Unknown]
  - Cardiac arrest [Fatal]
  - Platelet count decreased [Recovered/Resolved]
  - Renal impairment [Fatal]
  - Multiple organ dysfunction syndrome [Fatal]
  - Cerebral venous thrombosis [Fatal]
  - Hypertension [Fatal]

NARRATIVE: CASE EVENT DATE: 201703
